FAERS Safety Report 4668438-5 (Version None)
Quarter: 2005Q2

REPORT INFORMATION
  Report Type: 
  Country: None (occurrence: None)
  Receive Date: 20050523
  Receipt Date: 20050302
  Transmission Date: 20051028
  Serious: Yes (Other)
  Sender: FDA-Public Use
  Company Number: PHNU2005DE01166

PATIENT
  Sex: Female

DRUGS (2)
  1. AREDIA [Suspect]
     Indication: PLASMACYTOMA
     Dosage: 90 MG, ONCE/SINGLE
     Route: 042
     Dates: start: 20040501, end: 20040501
  2. ZOMETA [Suspect]
     Indication: PLASMACYTOMA
     Dosage: 4 MG, QMO
     Route: 042
     Dates: start: 20040701, end: 20041101

REACTIONS (3)
  - JAW DISORDER [None]
  - JAW OPERATION [None]
  - OSTEONECROSIS [None]
